FAERS Safety Report 4748537-X (Version None)
Quarter: 2005Q3

REPORT INFORMATION
  Report Type: 
  Country: None (occurrence: None)
  Receive Date: 20050819
  Receipt Date: 20050812
  Transmission Date: 20060218
  Serious: Yes (Hospitalization)
  Sender: FDA-Public Use
  Company Number: FR-BOEHRINGER INGELHEIM PHARMACEUTICALS, INC.-2005-FF-00575FF

PATIENT
  Sex: Male

DRUGS (5)
  1. CATAPRES [Suspect]
     Route: 048
     Dates: end: 20050719
  2. BACTRIM [Concomitant]
     Indication: URINARY TRACT INFECTION
     Dates: start: 20050707, end: 20050712
  3. CORDARONE [Concomitant]
     Dates: end: 20050719
  4. AMLODIPINE BESYLATE [Concomitant]
     Dates: end: 20050719
  5. EFFEXOR [Concomitant]
     Dates: start: 20050701, end: 20050713

REACTIONS (3)
  - DERMATITIS BULLOUS [None]
  - STEVENS-JOHNSON SYNDROME [None]
  - TOXIC EPIDERMAL NECROLYSIS [None]
